FAERS Safety Report 4354704-X (Version None)
Quarter: 2004Q2

REPORT INFORMATION
  Report Type: 
  Country: None (occurrence: None)
  Receive Date: 20040503
  Receipt Date: 20040420
  Transmission Date: 20050107
  Serious: Yes (Other)
  Sender: FDA-Public Use
  Company Number: 2004026993

PATIENT
  Age: 55 Year
  Sex: Female

DRUGS (5)
  1. ZOLOFT [Suspect]
     Indication: DEPRESSION
     Dosage: 150 MG (DAILY) ,ORAL
     Route: 048
     Dates: start: 19970101
  2. BUSPIRONE HCL [Suspect]
     Indication: ILL-DEFINED DISORDER
     Dosage: 30 MG (BID) ,ORAL
     Route: 048
     Dates: start: 20040101
  3. ZALEPLON [Concomitant]
  4. LEVOTHYROXINE SODIUM [Concomitant]
  5. FLUVASTATIN [Concomitant]

REACTIONS (3)
  - HYPERTROPHY BREAST [None]
  - UTERINE LEIOMYOMA [None]
  - WEIGHT INCREASED [None]
